FAERS Safety Report 6548926-7 (Version None)
Quarter: 2010Q1

REPORT INFORMATION
  Report Type: 
  Country: None (occurrence: None)
  Receive Date: 20100125
  Receipt Date: 20100114
  Transmission Date: 20100710
  Serious: Yes (Hospitalization)
  Sender: FDA-Public Use
  Company Number: US-BIOGENIDEC-172672

PATIENT
  Age: 39 Year
  Sex: Female
  Weight: 57 kg

DRUGS (5)
  1. AVONEX [Suspect]
     Indication: MULTIPLE SCLEROSIS
     Route: 030
     Dates: start: 20030301, end: 20031201
  2. AVONEX [Suspect]
     Route: 030
     Dates: start: 20031201, end: 20070101
  3. DEPAKOTE [Concomitant]
     Indication: MOOD SWINGS
     Dates: start: 20031201
  4. EFFEXOR [Concomitant]
     Indication: DEPRESSION
     Dates: start: 20031201
  5. DARVOCET-N 100 [Concomitant]
     Indication: PAIN
     Dates: start: 20030101

REACTIONS (3)
  - BREAST CANCER [None]
  - INSOMNIA [None]
  - MULTIPLE SCLEROSIS RELAPSE [None]
